FAERS Safety Report 24781374 (Version 1)
Quarter: 2024Q4

REPORT INFORMATION
  Report Type: Report from Study
  Country: US (occurrence: US)
  Receive Date: 20241227
  Receipt Date: 20241227
  Transmission Date: 20250115
  Serious: Yes (Death, Hospitalization, Other)
  Sender: REGENERON
  Company Number: US-REGENERON PHARMACEUTICALS, INC.-2024-177475

PATIENT
  Sex: Female

DRUGS (4)
  1. EYLEA [Suspect]
     Active Substance: AFLIBERCEPT
     Indication: Diabetic retinopathy
     Dosage: UNK, FORMULATION:UNKNOWN
  2. EYLEA [Suspect]
     Active Substance: AFLIBERCEPT
     Indication: Diabetic retinal oedema
  3. EYLEA [Suspect]
     Active Substance: AFLIBERCEPT
     Indication: Eye disorder
  4. EYLEA [Suspect]
     Active Substance: AFLIBERCEPT
     Indication: Glaucoma

REACTIONS (9)
  - Death [Fatal]
  - Hospitalisation [Unknown]
  - Dialysis [Unknown]
  - Seizure [Unknown]
  - Diabetes mellitus [Unknown]
  - Cerebrovascular accident [Unknown]
  - Myocardial infarction [Unknown]
  - Off label use [Not Recovered/Not Resolved]
  - Drug effective for unapproved indication [Unknown]

NARRATIVE: CASE EVENT DATE: 20240728
